FAERS Safety Report 7431877-3 (Version None)
Quarter: 2011Q2

REPORT INFORMATION
  Report Type: 
  Country: None (occurrence: None)
  Receive Date: 20110422
  Receipt Date: 20110420
  Transmission Date: 20111010
  Serious: Yes (Life-Threatening, Hospitalization)
  Sender: FDA-Public Use
  Company Number: FR-PFIZER INC-2011085908

PATIENT
  Age: 8 Year
  Sex: Female

DRUGS (2)
  1. OROKEN [Suspect]
     Indication: TONSILLITIS
     Dosage: UNK
     Route: 048
     Dates: start: 20101210, end: 20101210
  2. CHILDREN'S ADVIL [Suspect]
     Indication: TONSILLITIS
     Dosage: UNK
     Route: 048
     Dates: start: 20101210, end: 20101210

REACTIONS (2)
  - ANAPHYLACTIC SHOCK [None]
  - ANGIOEDEMA [None]
